FAERS Safety Report 7825039-5 (Version None)
Quarter: 2011Q4

REPORT INFORMATION
  Report Type: 
  Country: None (occurrence: None)
  Receive Date: 20111019
  Receipt Date: 20110406
  Transmission Date: 20120403
  Serious: No
  Sender: FDA-Public Use
  Company Number: US-BRISTOL-MYERS SQUIBB COMPANY-15656283

PATIENT
  Age: 65 Year
  Sex: Male

DRUGS (3)
  1. ASPIRIN [Concomitant]
  2. AVALIDE [Suspect]
     Indication: BLOOD PRESSURE
     Dosage: 1 DF = 300/12.5MG
  3. VIAGRA [Concomitant]

REACTIONS (1)
  - ECZEMA [None]
